FAERS Safety Report 12883780 (Version 2)
Quarter: 2016Q4

REPORT INFORMATION
  Report Type: Spontaneous
  Country: US (occurrence: US)
  Receive Date: 20161026
  Receipt Date: 20161109
  Transmission Date: 20170207
  Serious: Yes (Other)
  Sender: FDA-Public Use
  Company Number: US-BEH-2016074380

PATIENT
  Age: 14 Year
  Sex: Male
  Weight: 28.6 kg

DRUGS (8)
  1. MEPRON                             /00049601/ [Concomitant]
     Active Substance: METHYLPREDNISOLONE
  2. VENOFER [Concomitant]
     Active Substance: IRON SUCROSE
  3. SYNTHROID [Concomitant]
     Active Substance: LEVOTHYROXINE SODIUM
  4. BUDESONIDE. [Concomitant]
     Active Substance: BUDESONIDE
  5. VANCOMYCIN [Concomitant]
     Active Substance: VANCOMYCIN
  6. PRIVIGEN [Suspect]
     Active Substance: HUMAN IMMUNOGLOBULIN G
     Indication: COMBINED IMMUNODEFICIENCY
     Dosage: 36 G, QOW
     Route: 042
  7. SINGULAIR [Concomitant]
     Active Substance: MONTELUKAST SODIUM
  8. SOLUTIONS FOR PARENTERAL NUTRITION [Concomitant]
     Active Substance: AMINO ACIDS\DEXTROSE\ELECTROLYTES NOS

REACTIONS (2)
  - Blood beta-D-glucan increased [Not Recovered/Not Resolved]
  - False positive investigation result [Not Recovered/Not Resolved]

NARRATIVE: CASE EVENT DATE: 20160809
